FAERS Safety Report 9726467 (Version 1)
Quarter: 2013Q4

REPORT INFORMATION
  Report Type: Spontaneous
  Country: US (occurrence: None)
  Receive Date: 20131202
  Receipt Date: 20131202
  Transmission Date: 20140711
  Serious: No
  Sender: FDA-Public Use
  Company Number: None

PATIENT
  Age: 58 Year
  Sex: Female

DRUGS (1)
  1. TECFIDERA [Suspect]
     Indication: ILL-DEFINED DISORDER
     Route: 048
     Dates: start: 20131022, end: 20131119

REACTIONS (4)
  - Gait disturbance [None]
  - Abdominal discomfort [None]
  - Aphagia [None]
  - Weight decreased [None]
